FAERS Safety Report 10218826 (Version 1)
Quarter: 2014Q1

REPORT INFORMATION
  Report Type: Spontaneous
  Country: US (occurrence: None)
  Receive Date: 20140306
  Receipt Date: 20140306
  Transmission Date: 20141002
  Serious: Yes (Other)
  Sender: FDA-Public Use
  Company Number: 163-21880-12012739

PATIENT
  Age: 86 Year
  Sex: Female
  Weight: 71.8 kg

DRUGS (1)
  1. REVLIMID [Suspect]
     Indication: PLASMA CELL MYELOMA
     Route: 048
     Dates: start: 200908

REACTIONS (5)
  - Osteoporosis [None]
  - Paraesthesia [None]
  - Drug dose omission [None]
  - Diarrhoea [None]
  - Hypoaesthesia [None]
